FAERS Safety Report 5020933-5 (Version None)
Quarter: 2006Q2

REPORT INFORMATION
  Report Type: 
  Country: None (occurrence: None)
  Receive Date: 20060602
  Receipt Date: 20060522
  Transmission Date: 20061013
  Serious: Yes (Hospitalization, Other)
  Sender: FDA-Public Use
  Company Number: 2006-04-0398

PATIENT
  Age: 49 Year
  Sex: Female
  Weight: 80.2867 kg

DRUGS (12)
  1. PEG-INTRON [Suspect]
     Indication: HEPATITIS C
     Dosage: 35 MCG
  2. DURAGESIC TOPICALS [Suspect]
     Indication: SKIN ULCER
     Dosage: 25 MCG TOPICAL
     Route: 061
  3. PROPOFOL [Concomitant]
  4. LOVENOX [Concomitant]
  5. REGLAN [Concomitant]
  6. PREVACID [Concomitant]
  7. PEPCID [Concomitant]
  8. LACTULOSE [Concomitant]
  9. THIAMINE [Concomitant]
  10. FOLIC AICD [Concomitant]
  11. NEOMYCIN [Concomitant]
  12. EFFEXOR [Concomitant]

REACTIONS (13)
  - ATELECTASIS [None]
  - BLOOD AMYLASE INCREASED [None]
  - DEPRESSION [None]
  - ENCEPHALOPATHY [None]
  - GALLBLADDER DISORDER [None]
  - HALLUCINATION [None]
  - MACROCYTOSIS [None]
  - PORTAL HYPERTENSION [None]
  - RENAL FAILURE ACUTE [None]
  - RESPIRATORY ACIDOSIS [None]
  - RESPIRATORY FAILURE [None]
  - SOMNOLENCE [None]
  - VOMITING [None]
